FAERS Safety Report 7782842-8 (Version None)
Quarter: 2011Q3

REPORT INFORMATION
  Report Type: 
  Country: None (occurrence: None)
  Receive Date: 20110926
  Receipt Date: 20110923
  Transmission Date: 20111222
  Serious: Yes (Other)
  Sender: FDA-Public Use
  Company Number: 1022556-2011-00024

PATIENT
  Sex: Female

DRUGS (4)
  1. ASPERCREME [Concomitant]
  2. ICY HOT PATCH - GENERIC [Suspect]
     Indication: MYALGIA
     Dosage: TOPICAL
     Route: 061
  3. BEN GAY [Concomitant]
  4. HEATING PAD [Concomitant]

REACTIONS (3)
  - APPLICATION SITE VESICLES [None]
  - BURNS SECOND DEGREE [None]
  - APPLICATION SITE BURN [None]
